FAERS Safety Report 4910330-2 (Version None)
Quarter: 2006Q1

REPORT INFORMATION
  Report Type: 
  Country: None (occurrence: None)
  Receive Date: 20060213
  Receipt Date: 20050621
  Transmission Date: 20060701
  Serious: Yes (Hospitalization)
  Sender: FDA-Public Use
  Company Number: US-MERCK-0506USA03188

PATIENT
  Age: 71 Year
  Sex: Female

DRUGS (1)
  1. VIOXX [Suspect]
     Route: 048

REACTIONS (9)
  - AZOTAEMIA [None]
  - CEREBRAL INFARCTION [None]
  - DEHYDRATION [None]
  - EMBOLIC CEREBRAL INFARCTION [None]
  - ESCHERICHIA URINARY TRACT INFECTION [None]
  - GENITOURINARY TRACT INFECTION [None]
  - ISCHAEMIC STROKE [None]
  - THROMBOTIC STROKE [None]
  - URINARY INCONTINENCE [None]
